FAERS Safety Report 6294802-7 (Version None)
Quarter: 2009Q3

REPORT INFORMATION
  Report Type: 
  Country: None (occurrence: None)
  Receive Date: 20090730
  Receipt Date: 20080818
  Transmission Date: 20100115
  Serious: No
  Sender: FDA-Public Use
  Company Number: 2008-1196

PATIENT
  Age: 59 Year
  Sex: Male
  Weight: 102 kg

DRUGS (8)
  1. LANREOTIDE AUTOGEL (LANREOTIDE) (LANREOTIDE ACETATE) [Suspect]
     Dosage: (90 MG, 1 IN 1 M), SUBCUTANEOUS
     Route: 058
     Dates: start: 20080814
  2. EFFEXOR [Concomitant]
  3. AVODART [Concomitant]
  4. ALTACE [Concomitant]
  5. HYDROCHLOROTHIAZIDE [Concomitant]
  6. CELEBREX [Concomitant]
  7. TRAMADOL HCL [Concomitant]
  8. RITALIN [Concomitant]

REACTIONS (2)
  - FATIGUE [None]
  - HEADACHE [None]
